FAERS Safety Report 4341682-2 (Version None)
Quarter: 2004Q2

REPORT INFORMATION
  Report Type: 
  Country: None (occurrence: None)
  Receive Date: 20040415
  Receipt Date: 20040402
  Transmission Date: 20050107
  Serious: Yes (Death)
  Sender: FDA-Public Use
  Company Number: 2004023356

PATIENT

DRUGS (1)
  1. ZOLOFT [Suspect]
     Indication: ILL-DEFINED DISORDER
     Dosage: 150 MG (DAILY)

REACTIONS (1)
  - DRUG TOXICITY [None]
